FAERS Safety Report 10182652 (Version 1)
Quarter: 2014Q2

REPORT INFORMATION
  Report Type: Spontaneous
  Country: US (occurrence: None)
  Receive Date: 20140519
  Receipt Date: 20140519
  Transmission Date: 20141212
  Serious: Yes (Other)
  Sender: FDA-Public Use
  Company Number: None

PATIENT
  Sex: 0

DRUGS (1)
  1. DEPO MEDROL [Suspect]
     Indication: PAIN
     Dosage: ONCE DAILY ?SPINE

REACTIONS (1)
  - Unevaluable event [None]
